FAERS Safety Report 13929645 (Version 3)
Quarter: 2017Q3

REPORT INFORMATION
  Report Type: Spontaneous
  Country: US (occurrence: US)
  Receive Date: 20170901
  Receipt Date: 20170914
  Transmission Date: 20171127
  Serious: Yes (Hospitalization, Other)
  Sender: FDA-Public Use
  Company Number: US-JAZZ-2017-US-009643

PATIENT
  Age: 49 Year
  Sex: Female

DRUGS (1)
  1. XYREM [Suspect]
     Active Substance: SODIUM OXYBATE
     Indication: NARCOLEPSY
     Dosage: 2.25G, BID
     Route: 048
     Dates: start: 201707, end: 20170727

REACTIONS (7)
  - Blood pressure increased [Recovering/Resolving]
  - Transient ischaemic attack [Recovering/Resolving]
  - Nail operation [Unknown]
  - Back pain [Unknown]
  - Arthralgia [Unknown]
  - Migraine [Not Recovered/Not Resolved]
  - Arthropathy [Not Recovered/Not Resolved]

NARRATIVE: CASE EVENT DATE: 2017
